FAERS Safety Report 11043711 (Version 1)
Quarter: 2015Q2

REPORT INFORMATION
  Report Type: Spontaneous
  Country: GB (occurrence: GB)
  Receive Date: 20150417
  Receipt Date: 20150417
  Transmission Date: 20150821
  Serious: Yes (Hospitalization)
  Sender: FDA-Public Use
  Company Number: GB-ACTAVIS-2015-07756

PATIENT
  Age: 27 Year
  Sex: Male
  Weight: 79.37 kg

DRUGS (1)
  1. TRAMADOL (UNKNOWN) [Suspect]
     Active Substance: TRAMADOL
     Indication: ARTHRALGIA
     Dosage: UNK
     Route: 048
     Dates: start: 201407

REACTIONS (1)
  - Generalised tonic-clonic seizure [Recovering/Resolving]
